FAERS Safety Report 5836478-6 (Version None)
Quarter: 2008Q3

REPORT INFORMATION
  Report Type: 
  Country: None (occurrence: None)
  Receive Date: 20080805
  Receipt Date: 20080723
  Transmission Date: 20090109
  Serious: Yes (Death, Other)
  Sender: FDA-Public Use
  Company Number: 2008AL005357

PATIENT
  Age: 107 Year
  Sex: Male

DRUGS (1)
  1. DIGOXIN [Suspect]
     Indication: CARDIAC DISORDER
     Dosage: .25MG
     Dates: start: 20010101, end: 20080401

REACTIONS (4)
  - ACUTE MYOCARDIAL INFARCTION [None]
  - OEDEMA [None]
  - PULMONARY OEDEMA [None]
  - RENAL DISORDER [None]
